FAERS Safety Report 10056913 (Version 3)
Quarter: 2014Q2

REPORT INFORMATION
  Report Type: Spontaneous
  Country: BE (occurrence: BE)
  Receive Date: 20140403
  Receipt Date: 20140425
  Transmission Date: 20141212
  Serious: Yes (Hospitalization, Other)
  Sender: FDA-Public Use
  Company Number: BE-ASTRAZENECA-2014SE21476

PATIENT
  Age: 58 Year
  Sex: Male
  Weight: 69 kg

DRUGS (14)
  1. CRESTOR [Suspect]
     Indication: HYPERCHOLESTEROLAEMIA
     Route: 048
     Dates: start: 20100302
  2. CRESTOR [Suspect]
     Indication: HYPERCHOLESTEROLAEMIA
     Route: 048
     Dates: start: 20121005
  3. CRESTOR [Suspect]
     Indication: HYPERCHOLESTEROLAEMIA
     Route: 048
     Dates: start: 20130313
  4. CRESTOR [Suspect]
     Indication: HYPERCHOLESTEROLAEMIA
     Route: 048
     Dates: start: 20130910
  5. CRESTOR [Suspect]
     Indication: HYPERCHOLESTEROLAEMIA
     Route: 048
     Dates: start: 20130610, end: 201402
  6. METFORMINE [Concomitant]
     Indication: TYPE 2 DIABETES MELLITUS
     Route: 048
  7. METFORMINE [Concomitant]
     Indication: TYPE 2 DIABETES MELLITUS
     Route: 048
  8. METFORMINE [Concomitant]
     Indication: TYPE 2 DIABETES MELLITUS
     Dosage: 850 MG AT 8 AM, AT NOON TIME, AND AT 5 PM
     Route: 048
  9. UNI DIAMICRON [Concomitant]
     Indication: TYPE 2 DIABETES MELLITUS
     Route: 048
  10. UNI DIAMICRON [Concomitant]
     Indication: TYPE 2 DIABETES MELLITUS
     Route: 048
  11. UBIXX [Concomitant]
  12. D-CURE [Concomitant]
  13. AMLOR [Concomitant]
     Indication: HYPERTENSION
     Dates: start: 20140123
  14. PANTOMED [Concomitant]

REACTIONS (20)
  - Renal failure acute [Recovering/Resolving]
  - Tubulointerstitial nephritis [Not Recovered/Not Resolved]
  - Haematuria [Unknown]
  - Abnormal loss of weight [Unknown]
  - Malaise [Unknown]
  - Decreased appetite [Unknown]
  - Nausea [Unknown]
  - Constipation [Unknown]
  - Proteinuria [Not Recovered/Not Resolved]
  - Fatigue [Unknown]
  - Arteriosclerosis [Unknown]
  - Hypertension [Unknown]
  - Hypertriglyceridaemia [Unknown]
  - Vomiting [Unknown]
  - Gastrooesophageal reflux disease [Unknown]
  - Gastritis [Unknown]
  - Chills [Unknown]
  - Tendonitis [Unknown]
  - Gastrointestinal erosion [Unknown]
  - Hiatus hernia [Unknown]
